FAERS Safety Report 4366054-6 (Version None)
Quarter: 2004Q2

REPORT INFORMATION
  Report Type: 
  Country: None (occurrence: None)
  Receive Date: 20040527
  Receipt Date: 20040519
  Transmission Date: 20050107
  Serious: Yes (Hospitalization)
  Sender: FDA-Public Use
  Company Number: 200412042FR

PATIENT
  Age: 40 Year
  Sex: Male

DRUGS (4)
  1. FLAGYL [Suspect]
     Indication: ANAL ABSCESS
     Route: 048
     Dates: start: 20040326, end: 20040420
  2. CIPROFLOXACIN [Concomitant]
     Indication: ANAL ABSCESS
     Route: 048
     Dates: start: 20040310, end: 20040315
  3. IMUREL [Concomitant]
     Route: 048
     Dates: start: 19990101
  4. IMODIUM [Concomitant]
     Route: 048
     Dates: start: 20040315, end: 20040326

REACTIONS (3)
  - CHOLELITHIASIS [None]
  - INFECTION [None]
  - PANCREATITIS ACUTE [None]
